FAERS Safety Report 10811910 (Version 3)
Quarter: 2015Q2

REPORT INFORMATION
  Report Type: Report from Study
  Country: RO (occurrence: RO)
  Receive Date: 20150217
  Receipt Date: 20150427
  Transmission Date: 20150821
  Serious: Yes (Hospitalization)
  Sender: FDA-Public Use
  Company Number: RO-ABBVIE-15P-135-1347187-00

PATIENT
  Age: 57 Year
  Sex: Male

DRUGS (4)
  1. FOKUSIN [Concomitant]
     Indication: PROSTATIC ADENOMA
     Route: 048
  2. VIREGYT [Concomitant]
     Indication: PARKINSON^S DISEASE
     Route: 048
  3. LEVODOPA/CARBIDOPA [Suspect]
     Active Substance: CARBIDOPA\LEVODOPA
     Indication: PARKINSON^S DISEASE
     Dosage: CR: 8.2 ML/H; ?ED: 5.1 ML
     Route: 050
     Dates: start: 20130423
  4. ROPIRINOLE [Concomitant]
     Indication: PARKINSON^S DISEASE
     Route: 048

REACTIONS (1)
  - Basal cell carcinoma [Recovered/Resolved]

NARRATIVE: CASE EVENT DATE: 20150130
